FAERS Safety Report 13539434 (Version 3)
Quarter: 2017Q2

REPORT INFORMATION
  Report Type: Spontaneous
  Country: US (occurrence: US)
  Receive Date: 20170512
  Receipt Date: 20170623
  Transmission Date: 20170830
  Serious: No
  Sender: FDA-Public Use
  Company Number: US-PFIZER INC-2017208426

PATIENT
  Age: 70 Year
  Sex: Female
  Weight: 85.73 kg

DRUGS (8)
  1. IBRANCE [Suspect]
     Active Substance: PALBOCICLIB
     Dosage: 100 MG, CYCLIC  (CAPSULE ONCE DAILY BY MOUTH FOR 21 DAYS OUT OF EVERY 28 DAYS)
     Route: 048
     Dates: start: 201704
  2. IBRANCE [Suspect]
     Active Substance: PALBOCICLIB
     Indication: BREAST CANCER METASTATIC
     Dosage: 100 MG, CYCLIC (100MG PO DAILY 21 DAYS ON 7 DAY OFF EACH CYCLE) (1/DAY 21 DAYS ON 7 OFF)
     Route: 048
     Dates: start: 20170315
  3. OMEGA 3 [Concomitant]
     Active Substance: OMEGA-3 FATTY ACIDS
     Indication: SUPPLEMENTATION THERAPY
     Dosage: UNK, 2X/DAY
     Dates: start: 2016
  4. LEVOTHYROXINE. [Concomitant]
     Active Substance: LEVOTHYROXINE
     Indication: THYROID DISORDER
     Dosage: 75 UG, 1X/DAY
     Dates: start: 2000
  5. VITAMIN K [Concomitant]
     Active Substance: PHYTONADIONE
     Indication: SUPPLEMENTATION THERAPY
     Dosage: UNK, 1X/DAY
     Dates: start: 201704
  6. VITAMIN D [Concomitant]
     Active Substance: CHOLECALCIFEROL
     Indication: SUPPLEMENTATION THERAPY
     Dosage: UNK, 1X/DAY
     Dates: start: 201504
  7. BREO ELLIPTA [Concomitant]
     Active Substance: FLUTICASONE FUROATE\VILANTEROL TRIFENATATE
     Indication: ASTHMA
     Dosage: ONE PUFF EVERY MORNING
     Dates: start: 2014
  8. LETROZOLE. [Concomitant]
     Active Substance: LETROZOLE
     Indication: NEOPLASM MALIGNANT
     Dosage: 2.5 MG, 1X/DAY
     Route: 048
     Dates: start: 201703

REACTIONS (5)
  - Rhinorrhoea [Recovering/Resolving]
  - Viral upper respiratory tract infection [Recovered/Resolved]
  - Oropharyngeal pain [Recovered/Resolved]
  - Cough [Recovered/Resolved]
  - Malaise [Recovered/Resolved]

NARRATIVE: CASE EVENT DATE: 20170317
